FAERS Safety Report 9440544 (Version 1)
Quarter: 2013Q3

REPORT INFORMATION
  Report Type: Spontaneous
  Country: US (occurrence: US)
  Receive Date: 20130805
  Receipt Date: 20130805
  Transmission Date: 20140515
  Serious: Yes (Hospitalization, Other)
  Sender: FDA-Public Use
  Company Number: US-ELI_LILLY_AND_COMPANY-US201307009524

PATIENT
  Age: 65 Year
  Sex: Female

DRUGS (2)
  1. GEMZAR [Suspect]
     Indication: OVARIAN CANCER
     Dosage: 750 MG/M2, UNK
  2. DILAUDID [Concomitant]
     Indication: PAIN

REACTIONS (4)
  - Pyrexia [Unknown]
  - Pericardial effusion [Unknown]
  - Dyspnoea [Unknown]
  - Chest discomfort [Unknown]
